FAERS Safety Report 16327696 (Version 5)
Quarter: 2020Q1

REPORT INFORMATION
  Report Type: Report from Study
  Country: BR (occurrence: BR)
  Receive Date: 20190517
  Receipt Date: 20200107
  Transmission Date: 20200409
  Serious: Yes (Other)
  Sender: FDA-Public Use
  Company Number: PHHY2019BR091833

PATIENT
  Age: 33 Year
  Sex: Male
  Weight: 86 kg

DRUGS (7)
  1. COSENTYX [Suspect]
     Active Substance: SECUKINUMAB
     Dosage: UNK
     Route: 065
     Dates: start: 20190317
  2. VIMOVO [Concomitant]
     Active Substance: ESOMEPRAZOLE MAGNESIUM\NAPROXEN
     Indication: RHEUMATOID ARTHRITIS
     Dosage: 1 DF, Q12H
     Route: 065
     Dates: start: 201811
  3. COSENTYX [Suspect]
     Active Substance: SECUKINUMAB
     Dosage: UNK
     Route: 065
     Dates: start: 20190919
  4. COSENTYX [Suspect]
     Active Substance: SECUKINUMAB
     Indication: ANKYLOSING SPONDYLITIS
     Dosage: UNK
     Route: 065
     Dates: start: 20181012
  5. COSENTYX [Suspect]
     Active Substance: SECUKINUMAB
     Dosage: 1 DF, QMO
     Route: 058
     Dates: start: 20181128
  6. COSENTYX [Suspect]
     Active Substance: SECUKINUMAB
     Dosage: UNK
     Route: 065
     Dates: start: 20190617
  7. COSENTYX [Suspect]
     Active Substance: SECUKINUMAB
     Dosage: UNK
     Route: 065
     Dates: start: 20190415

REACTIONS (14)
  - Oropharyngeal pain [Unknown]
  - Plantar fasciitis [Unknown]
  - Therapeutic response shortened [Unknown]
  - Joint swelling [Not Recovered/Not Resolved]
  - Viral infection [Recovered/Resolved]
  - Joint stiffness [Unknown]
  - Pain [Unknown]
  - Tendonitis [Unknown]
  - Arthralgia [Unknown]
  - Ankylosing spondylitis [Unknown]
  - Neck pain [Not Recovered/Not Resolved]
  - Wound [Unknown]
  - Back pain [Unknown]
  - Tenosynovitis [Unknown]

NARRATIVE: CASE EVENT DATE: 201902
